FAERS Safety Report 4455727-2 (Version None)
Quarter: 2004Q3

REPORT INFORMATION
  Report Type: 
  Country: None (occurrence: None)
  Receive Date: 20040922
  Receipt Date: 20040810
  Transmission Date: 20050211
  Serious: Yes (Hospitalization)
  Sender: FDA-Public Use
  Company Number: JP-ABBOTT-04P-087-0270005-00

PATIENT
  Sex: Male

DRUGS (16)
  1. TASMOLIN [Suspect]
     Indication: DRUG USE FOR UNKNOWN INDICATION
     Route: 048
     Dates: start: 20040210, end: 20040421
  2. TASMOLIN [Suspect]
     Route: 048
     Dates: start: 20031022, end: 20040209
  3. TASMOLIN [Suspect]
     Route: 048
     Dates: start: 20040421
  4. LODOPIN [Suspect]
     Indication: SCHIZOPHRENIA
     Route: 048
     Dates: start: 20031222, end: 20040421
  5. QUETIAPINE [Suspect]
     Indication: SCHIZOPHRENIA
     Route: 048
     Dates: start: 20031022, end: 20040421
  6. QUETIAPINE [Suspect]
     Route: 048
     Dates: start: 20031203, end: 20031208
  7. QUETIAPINE [Suspect]
     Route: 048
     Dates: start: 20031209, end: 20031215
  8. QUETIAPINE [Suspect]
     Route: 048
     Dates: start: 20031216, end: 20031221
  9. QUETIAPINE [Suspect]
     Dates: start: 20040622, end: 20040625
  10. QUETIAPINE [Suspect]
     Dates: start: 20040625, end: 20040628
  11. QUETIAPINE [Suspect]
     Dates: start: 20040629
  12. RISPERIDONE [Suspect]
     Indication: SCHIZOPHRENIA
     Route: 048
     Dates: start: 20040210, end: 20040421
  13. RISPERIDONE [Suspect]
     Dates: start: 20040723
  14. FLUNITRAZEPAM [Suspect]
     Indication: DRUG USE FOR UNKNOWN INDICATION
     Route: 048
     Dates: start: 20031022, end: 20040421
  15. VEGETAMIN [Suspect]
     Indication: DRUG USE FOR UNKNOWN INDICATION
     Route: 048
     Dates: start: 20031022, end: 20040421
  16. OLANZAPINE [Concomitant]
     Indication: DRUG USE FOR UNKNOWN INDICATION
     Route: 048
     Dates: start: 20031022, end: 20031202

REACTIONS (5)
  - DEPRESSED LEVEL OF CONSCIOUSNESS [None]
  - HEPATIC FUNCTION ABNORMAL [None]
  - HYPOGLYCAEMIA [None]
  - PNEUMONIA ASPIRATION [None]
  - PROTEIN TOTAL DECREASED [None]
